FAERS Safety Report 12595671 (Version 1)
Quarter: 2016Q3

REPORT INFORMATION
  Report Type: Report from Study
  Country: US (occurrence: US)
  Receive Date: 20160726
  Receipt Date: 20160726
  Transmission Date: 20161109
  Serious: No
  Sender: FDA-Public Use
  Company Number: US-AMGEN-USASL2016019706

PATIENT
  Age: 67 Year
  Sex: Female

DRUGS (2)
  1. KYPROLIS [Suspect]
     Active Substance: CARFILZOMIB
     Dosage: UNK
     Route: 065
  2. KYPROLIS [Suspect]
     Active Substance: CARFILZOMIB
     Indication: PLASMA CELL MYELOMA
     Dosage: MONDAYS AND TUESDAYS
     Route: 065
     Dates: start: 201507

REACTIONS (7)
  - Oedema peripheral [Unknown]
  - Cough [Unknown]
  - Cognitive disorder [Unknown]
  - Periorbital oedema [Unknown]
  - Sleep disorder [Unknown]
  - Capillary fragility [Unknown]
  - Dyspnoea [Unknown]
